FAERS Safety Report 19299374 (Version 1)
Quarter: 2021Q2

REPORT INFORMATION
  Report Type: Spontaneous
  Country: US (occurrence: US)
  Receive Date: 20210524
  Receipt Date: 20210524
  Transmission Date: 20210717
  Serious: Yes (Other)
  Sender: FDA-Public Use
  Company Number: None

PATIENT
  Age: 56 Year
  Sex: Female

DRUGS (1)
  1. COSENTYX [Suspect]
     Active Substance: SECUKINUMAB
     Indication: PSORIATIC ARTHROPATHY
     Dosage: 300MG EVERY 30DAYS SUBQ
     Route: 058
     Dates: start: 20200129, end: 20210517

REACTIONS (3)
  - Lymphoedema [None]
  - Rash [None]
  - Periorbital swelling [None]

NARRATIVE: CASE EVENT DATE: 20210524
